FAERS Safety Report 6945998-2 (Version None)
Quarter: 2010Q3

REPORT INFORMATION
  Report Type: 
  Country: None (occurrence: None)
  Receive Date: 20100827
  Receipt Date: 20100216
  Transmission Date: 20110219
  Serious: No
  Sender: FDA-Public Use
  Company Number: A0844727A

PATIENT
  Age: 47 Year
  Sex: Male

DRUGS (2)
  1. ZOVIRAX [Suspect]
     Indication: HERPES VIRUS INFECTION
     Dosage: 800MG FIVE TIMES PER DAY
     Route: 048
     Dates: start: 20100215
  2. MULTIPLE MEDICATIONS [Concomitant]

REACTIONS (2)
  - NAUSEA [None]
  - VOMITING [None]
